FAERS Safety Report 10514373 (Version 1)
Quarter: 2014Q4

REPORT INFORMATION
  Report Type: Spontaneous
  Country: DE (occurrence: DE)
  Receive Date: 20141013
  Receipt Date: 20141013
  Transmission Date: 20150528
  Serious: Yes (Congenital Anomaly)
  Sender: FDA-Public Use
  Company Number: DE-TEVA-513654GER

PATIENT
  Age: 1 Day
  Sex: Male

DRUGS (8)
  1. PARACETAMOL [Concomitant]
     Active Substance: ACETAMINOPHEN
     Indication: HEADACHE
     Dosage: TAKEN 3 TO 4 TIMES DURING PREGNANCY
     Route: 064
  2. CEFUROXIM [Concomitant]
     Active Substance: CEFUROXIME
     Indication: PYELONEPHRITIS
     Dosage: FOR 5 DAYS AFTER AMOXI MEDICATION, DOSE UNKNOWN
     Route: 064
  3. TRAMADOLOR [Suspect]
     Active Substance: TRAMADOL
     Indication: SUBSTANCE ABUSER
     Dosage: 200 MILLIGRAM DAILY; 200 [MG/D ]/ UNTIL ONE WEEK BEFORE DELIVERY, 2X100MG/D
     Route: 064
  4. VITAMIN B6- PYRIDOXIN [Concomitant]
     Indication: VOMITING IN PREGNANCY
     Dosage: FROM 4TH GESTATIONAL MONTH, FOR ABOUT 3 WEEKS
     Route: 064
  5. CITALOPRAM [Suspect]
     Active Substance: CITALOPRAM HYDROBROMIDE
     Indication: SELF-MEDICATION
     Dosage: 2.5 MILLIGRAM DAILY;
     Route: 064
  6. VOMACUR [Concomitant]
     Indication: VOMITING IN PREGNANCY
     Dosage: 50 MILLIGRAM DAILY;
     Route: 064
  7. AMOXICILLIN. [Concomitant]
     Active Substance: AMOXICILLIN
     Indication: PYELONEPHRITIS
     Dosage: 2000 MILLIGRAM DAILY;
     Route: 064
  8. FEMIBION [Concomitant]
     Active Substance: VITAMINS
     Indication: PROPHYLAXIS OF NEURAL TUBE DEFECT
     Route: 064

REACTIONS (2)
  - Syndactyly [Unknown]
  - Foetal exposure during pregnancy [Unknown]

NARRATIVE: CASE EVENT DATE: 20130806
